FAERS Safety Report 5324328-6 (Version None)
Quarter: 2007Q2

REPORT INFORMATION
  Report Type: 
  Country: None (occurrence: None)
  Receive Date: 20070509
  Receipt Date: 20070427
  Transmission Date: 20071010
  Serious: Yes (Other)
  Sender: FDA-Public Use
  Company Number: TUK2007A00030

PATIENT
  Age: 71 Year
  Sex: Female

DRUGS (9)
  1. ACTOS [Suspect]
     Indication: DIABETES MELLITUS NON-INSULIN-DEPENDENT
     Dosage: 15 MG ORAL
     Route: 048
     Dates: start: 20070312
  2. GLICLAZIDE (GLICLAZIDE) [Concomitant]
  3. METFORMIN HCL [Concomitant]
  4. LEVOTHYROXINE SODIUM [Concomitant]
  5. CLOPIDOGREL [Concomitant]
  6. TILDIEM LA (DILTIAZEM HYDROCHLORIDE) [Concomitant]
  7. IRBESARTAN [Concomitant]
  8. BENDROFLUMETHIAZIDE (BENDROFLUMETHIAZIDE) [Concomitant]
  9. PRAVASTATIN [Concomitant]

REACTIONS (3)
  - DIPLOPIA [None]
  - HYPERGLYCAEMIA [None]
  - VISUAL DISTURBANCE [None]
